FAERS Safety Report 7359228-3 (Version None)
Quarter: 2011Q1

REPORT INFORMATION
  Report Type: 
  Country: None (occurrence: None)
  Receive Date: 20110317
  Receipt Date: 20110303
  Transmission Date: 20110831
  Serious: Yes (Other)
  Sender: FDA-Public Use
  Company Number: PHHY2011US15680

PATIENT
  Sex: Male

DRUGS (6)
  1. CRESTOR [Concomitant]
     Indication: BLOOD CHOLESTEROL INCREASED
     Dosage: 5 MG DAILY
  2. TASIGNA [Suspect]
     Indication: NEOPLASM MALIGNANT
     Dosage: 400 MG, Q12H
     Route: 048
     Dates: start: 20100817
  3. BENICAR HCT [Concomitant]
     Indication: HYPERTENSION
  4. GLIMEPIRIDE [Concomitant]
     Indication: DIABETES MELLITUS
     Dosage: 2 MG DAILY
  5. TASIGNA [Suspect]
     Dosage: 200 MG, BID
     Dates: start: 20100611
  6. METFORMIN HCL [Concomitant]
     Indication: DIABETES MELLITUS
     Dosage: 150 MG DAILY

REACTIONS (5)
  - CHRONIC OBSTRUCTIVE PULMONARY DISEASE [None]
  - HERPES ZOSTER [None]
  - COUGH [None]
  - RASH [None]
  - IMMUNE SYSTEM DISORDER [None]
